FAERS Safety Report 8240012-3 (Version None)
Quarter: 2012Q1

REPORT INFORMATION
  Report Type: 
  Country: None (occurrence: None)
  Receive Date: 20120327
  Receipt Date: 20120327
  Transmission Date: 20120608
  Serious: Yes (Other)
  Sender: FDA-Public Use
  Company Number: None

PATIENT
  Sex: Female
  Weight: 43.9989 kg

DRUGS (1)
  1. TOPIRAMATE [Suspect]
     Dosage: 150 MG QHS

REACTIONS (1)
  - NAUSEA [None]
